FAERS Safety Report 4753665-9 (Version None)
Quarter: 2005Q3

REPORT INFORMATION
  Report Type: 
  Country: None (occurrence: None)
  Receive Date: 20050824
  Receipt Date: 20050811
  Transmission Date: 20060218
  Serious: Yes (Hospitalization)
  Sender: FDA-Public Use
  Company Number: 200510546BFR

PATIENT
  Age: 75 Year
  Sex: Female

DRUGS (3)
  1. CIPROFLOXACIN [Suspect]
     Indication: PYELONEPHRITIS
     Dosage: QD, ORAL
     Route: 048
     Dates: start: 20050619, end: 20050703
  2. IMOVANE [Concomitant]
  3. FUNGIZONE [Suspect]
     Dosage: QD,  ORAL
     Route: 048
     Dates: start: 20050619, end: 20050704

REACTIONS (3)
  - ESCHERICHIA INFECTION [None]
  - PRURITUS [None]
  - PURPURA [None]
